FAERS Safety Report 8166685-1 (Version None)
Quarter: 2012Q1

REPORT INFORMATION
  Report Type: 
  Country: None (occurrence: None)
  Receive Date: 20120227
  Receipt Date: 20120215
  Transmission Date: 20120608
  Serious: Yes (Other)
  Sender: FDA-Public Use
  Company Number: US-SANOFI-AVENTIS-2012SA010332

PATIENT
  Age: 84 Year
  Sex: Male

DRUGS (2)
  1. NEBIVOLOL [Suspect]
     Route: 065
     Dates: start: 20111001
  2. MULTAQ [Suspect]
     Indication: ATRIAL FIBRILLATION
     Route: 048
     Dates: start: 20110401, end: 20120215

REACTIONS (2)
  - ANAEMIA [None]
  - PLATELET COUNT DECREASED [None]
